FAERS Safety Report 16255201 (Version 1)
Quarter: 2019Q2

REPORT INFORMATION
  Report Type: Spontaneous
  Country: US (occurrence: US)
  Receive Date: 20190326
  Receipt Date: 20190326
  Transmission Date: 20190711
  Serious: Yes (Death)
  Sender: FDA-Public Use
  Company Number: None

PATIENT
  Sex: Male

DRUGS (2)
  1. BOTOX [Suspect]
     Active Substance: ONABOTULINUMTOXINA
     Indication: HEMIPARESIS
     Dosage: OTHER FREQUENCY:EVERY 3 MONTHS;?
     Route: 041
     Dates: start: 20190102
  2. BOTOX [Suspect]
     Active Substance: ONABOTULINUMTOXINA
     Indication: HEMIPLEGIA
     Dosage: OTHER FREQUENCY:EVERY 3 MONTHS;?
     Route: 041
     Dates: start: 20190102

REACTIONS (1)
  - Death [None]
